FAERS Safety Report 6941531-X (Version None)
Quarter: 2010Q3

REPORT INFORMATION
  Report Type: 
  Country: None (occurrence: None)
  Receive Date: 20100825
  Receipt Date: 20100817
  Transmission Date: 20110219
  Serious: Yes (Other)
  Sender: FDA-Public Use
  Company Number: US-AMGEN-QUU432025

PATIENT
  Sex: Male

DRUGS (2)
  1. NPLATE [Suspect]
     Indication: IDIOPATHIC THROMBOCYTOPENIC PURPURA
     Dates: start: 20081120, end: 20090319
  2. CORTICOSTEROIDS [Concomitant]
     Dates: start: 20080301

REACTIONS (1)
  - ALLOGENIC BONE MARROW TRANSPLANTATION THERAPY [None]
